FAERS Safety Report 24272702 (Version 3)
Quarter: 2024Q3

REPORT INFORMATION
  Report Type: Spontaneous
  Country: US (occurrence: US)
  Receive Date: 20240902
  Receipt Date: 20240930
  Transmission Date: 20241017
  Serious: No
  Sender: PADAGIS
  Company Number: US-PADAGIS-2024PAD01402

PATIENT

DRUGS (1)
  1. ERYTHROMYCIN [Suspect]
     Active Substance: ERYTHROMYCIN
     Indication: Acne
     Dosage: UNK
     Route: 065
     Dates: start: 20240830

REACTIONS (5)
  - Skin exfoliation [Unknown]
  - Incorrect dose administered [Unknown]
  - Product physical consistency issue [Unknown]
  - Product adhesion issue [Unknown]
  - Product odour abnormal [Unknown]
